FAERS Safety Report 17851011 (Version 2)
Quarter: 2020Q2

REPORT INFORMATION
  Report Type: Spontaneous
  Country: US (occurrence: US)
  Receive Date: 20200602
  Receipt Date: 20200624
  Transmission Date: 20200714
  Serious: No
  Sender: FDA-Public Use
  Company Number: US-ASTRAZENECA-2020SE62701

PATIENT
  Age: 66 Year
  Sex: Female
  Weight: 124.8 kg

DRUGS (1)
  1. FASENRA [Suspect]
     Active Substance: BENRALIZUMAB
     Indication: ASTHMA
     Dosage: 30.0MG UNKNOWN
     Route: 058
     Dates: start: 20190702

REACTIONS (5)
  - Osteoarthritis [Unknown]
  - Overweight [Unknown]
  - Pain [Unknown]
  - Arthritis [Unknown]
  - Myalgia [Recovered/Resolved]
